FAERS Safety Report 20711483 (Version 6)
Quarter: 2022Q4

REPORT INFORMATION
  Report Type: Report from Study
  Country: ES (occurrence: None)
  Receive Date: 20220414
  Receipt Date: 20221212
  Transmission Date: 20230112
  Serious: Yes (Hospitalization, Other)
  Sender: FDA-Public Use
  Company Number: ES-Eisai Medical Research-EC-2022-112523

PATIENT
  Age: 60 Year
  Sex: Male
  Weight: 87 kg

DRUGS (10)
  1. LENVATINIB [Suspect]
     Active Substance: LENVATINIB
     Indication: Hepatocellular carcinoma
     Route: 048
     Dates: start: 20220324, end: 20220403
  2. EPCLUSA [Concomitant]
     Active Substance: SOFOSBUVIR\VELPATASVIR
     Dosage: 400/100 MILLIGRAM
     Dates: start: 20220211, end: 20220403
  3. PRAVASTATIN [Concomitant]
     Active Substance: PRAVASTATIN
     Dates: start: 20220331
  4. TROMALYT [Concomitant]
     Active Substance: ASPIRIN
     Dosage: SINCE 10 YEARS AGO
  5. DAFIRO [Concomitant]
     Active Substance: AMLODIPINE\VALSARTAN
     Dosage: 10 MG /160 MG ONCE A DAY SINCE 10 YEARS AGO
  6. DOXAZOSIN MESYLATE [Concomitant]
     Active Substance: DOXAZOSIN MESYLATE
     Dates: start: 20220324
  7. BISOPROLOL FUMARATE [Concomitant]
     Active Substance: BISOPROLOL FUMARATE
  8. XIGDUO XR [Concomitant]
     Active Substance: DAPAGLIFLOZIN PROPANEDIOL\METFORMIN HYDROCHLORIDE
     Dosage: 5 MG / 850 MG
  9. CRESTOR [Concomitant]
     Active Substance: ROSUVASTATIN CALCIUM
     Indication: Hypercholesterolaemia
     Route: 048
     Dates: start: 20120101, end: 20220330
  10. OMEPRAZOLE [Concomitant]
     Active Substance: OMEPRAZOLE

REACTIONS (8)
  - Cholecystitis [Recovered/Resolved]
  - Hepatic pain [Not Recovered/Not Resolved]
  - Asthenia [Recovered/Resolved]
  - Proteinuria [Recovered/Resolved]
  - Hypertension [Recovered/Resolved]
  - Hepatic function abnormal [Recovered/Resolved]
  - Ascites [Not Recovered/Not Resolved]
  - Weight decreased [Not Recovered/Not Resolved]

NARRATIVE: CASE EVENT DATE: 20220325
